FAERS Safety Report 8609745-0 (Version None)
Quarter: 2012Q3

REPORT INFORMATION
  Report Type: 
  Country: None (occurrence: None)
  Receive Date: 20120821
  Receipt Date: 20120813
  Transmission Date: 20120928
  Serious: No
  Sender: FDA-Public Use
  Company Number: US-CELGENEUS-163-21880-12070126

PATIENT
  Sex: Male

DRUGS (3)
  1. DEXAMETHASONE [Concomitant]
     Indication: MULTIPLE MYELOMA
     Dosage: 40 MILLIGRAM
     Route: 065
     Dates: end: 20110329
  2. VELCADE [Concomitant]
     Dosage: 1.3-2.6MG
     Route: 065
     Dates: start: 20100616
  3. REVLIMID [Suspect]
     Indication: MULTIPLE MYELOMA
     Dosage: 10 MILLIGRAM
     Route: 048
     Dates: start: 20120517, end: 20120715

REACTIONS (2)
  - COMPULSIONS [None]
  - ANXIETY DISORDER [None]
